FAERS Safety Report 6099890-9 (Version None)
Quarter: 2009Q1

REPORT INFORMATION
  Report Type: 
  Country: None (occurrence: None)
  Receive Date: 20090303
  Receipt Date: 20090219
  Transmission Date: 20090719
  Serious: Yes (Other)
  Sender: FDA-Public Use
  Company Number: NL-TEVA-186198ISR

PATIENT
  Sex: Female

DRUGS (1)
  1. TRAMADOL HCL [Suspect]
     Dosage: 200 MG AND 400 MG
     Route: 048

REACTIONS (9)
  - APPETITE DISORDER [None]
  - CONSTIPATION [None]
  - DECREASED ACTIVITY [None]
  - DEPRESSED MOOD [None]
  - MALAISE [None]
  - MENTAL STATUS CHANGES [None]
  - PRURITUS GENERALISED [None]
  - SHOCK [None]
  - TREMOR [None]
